FAERS Safety Report 4353236-2 (Version None)
Quarter: 2004Q2

REPORT INFORMATION
  Report Type: 
  Country: None (occurrence: None)
  Receive Date: 20040505
  Receipt Date: 20040426
  Transmission Date: 20050107
  Serious: Yes (Hospitalization)
  Sender: FDA-Public Use
  Company Number: PHNU2004DE01610

PATIENT
  Age: 73 Year
  Sex: Male

DRUGS (1)
  1. DESFERAL [Suspect]
     Indication: HAEMOSIDEROSIS
     Dosage: 10 G, QD
     Dates: start: 20040301, end: 20040305

REACTIONS (11)
  - ACTIVITIES OF DAILY LIVING IMPAIRED [None]
  - ANGIOGRAM RETINA ABNORMAL [None]
  - FUNDOSCOPY ABNORMAL [None]
  - MACULOPATHY [None]
  - RETINAL HAEMORRHAGE [None]
  - RETINAL VASCULAR DISORDER [None]
  - RETINOGRAM ABNORMAL [None]
  - RETINOPATHY [None]
  - SCOTOMA [None]
  - VISUAL ACUITY REDUCED [None]
  - VISUAL FIELD TESTS ABNORMAL [None]
